FAERS Safety Report 19854913 (Version 1)
Quarter: 2021Q3

REPORT INFORMATION
  Report Type: Spontaneous
  Country: GB (occurrence: GB)
  Receive Date: 20210920
  Receipt Date: 20210920
  Transmission Date: 20211014
  Serious: Yes (Life-Threatening, Other)
  Sender: FDA-Public Use
  Company Number: GB-GLAXOSMITHKLINE-GBCH2021063884

PATIENT
  Age: 54 Year
  Sex: Male
  Weight: 84 kg

DRUGS (8)
  1. MORPHINE [Concomitant]
     Active Substance: MORPHINE
     Indication: ILL-DEFINED DISORDER
  2. ONDANSETRON [Concomitant]
     Active Substance: ONDANSETRON
     Indication: ILL-DEFINED DISORDER
  3. DICLOFENAC [Suspect]
     Active Substance: DICLOFENAC
     Indication: PERIOPERATIVE ANALGESIA
     Dosage: 75 MG
     Route: 042
     Dates: start: 20210905, end: 20210905
  4. ATRACURIUM [Suspect]
     Active Substance: ATRACURIUM
     Indication: ENDOTRACHEAL INTUBATION
     Dosage: 70 MG
     Route: 042
     Dates: start: 20210905, end: 20210905
  5. ALFENTANIL HYDROCHLORIDE. [Concomitant]
     Active Substance: ALFENTANIL HYDROCHLORIDE
     Indication: ILL-DEFINED DISORDER
  6. DEXAMETHASON [Concomitant]
     Active Substance: DEXAMETHASONE
     Indication: ILL-DEFINED DISORDER
  7. PIPERACILLIN AND TAZOBACTAM [Concomitant]
     Active Substance: PIPERACILLIN SODIUM\TAZOBACTAM SODIUM
     Indication: ILL-DEFINED DISORDER
  8. PARACETAMOL [Concomitant]
     Active Substance: ACETAMINOPHEN
     Indication: ILL-DEFINED DISORDER

REACTIONS (1)
  - Anaphylactic reaction [Recovered/Resolved]

NARRATIVE: CASE EVENT DATE: 20210905
